FAERS Safety Report 17992118 (Version 1)
Quarter: 2020Q3

REPORT INFORMATION
  Report Type: Spontaneous
  Country: CN (occurrence: CN)
  Receive Date: 20200707
  Receipt Date: 20200707
  Transmission Date: 20201103
  Serious: Yes (Hospitalization)
  Sender: FDA-Public Use
  Company Number: CN-NOVOPROD-737509

PATIENT
  Age: 62 Year
  Sex: Male

DRUGS (1)
  1. NOVOMIX 30 [Suspect]
     Active Substance: INSULIN ASPART
     Indication: TYPE 2 DIABETES MELLITUS
     Dosage: 32 IU, QD (18 U IN THE MORNING AND 14 U IN THE EVENING)
     Route: 065
     Dates: start: 2015

REACTIONS (1)
  - Insulin autoimmune syndrome [Recovered/Resolved]
